FAERS Safety Report 8243869-5 (Version None)
Quarter: 2012Q1

REPORT INFORMATION
  Report Type: 
  Country: None (occurrence: None)
  Receive Date: 20120329
  Receipt Date: 20110324
  Transmission Date: 20120608
  Serious: No
  Sender: FDA-Public Use
  Company Number: US-MYLANLABS-2011S1003994

PATIENT
  Age: 42 Year
  Sex: Female
  Weight: 53.52 kg

DRUGS (2)
  1. ESTRADIOL [Suspect]
     Indication: HORMONE REPLACEMENT THERAPY
     Dosage: CHANGED QWEEK.
     Route: 062
     Dates: start: 20100801
  2. ESTRADIOL [Suspect]
     Indication: HYSTERECTOMY
     Dosage: CHANGED QWEEK.
     Route: 062
     Dates: start: 20100801

REACTIONS (4)
  - WEIGHT INCREASED [None]
  - FATIGUE [None]
  - NAUSEA [None]
  - HOT FLUSH [None]
